FAERS Safety Report 7254005-6 (Version None)
Quarter: 2011Q1

REPORT INFORMATION
  Report Type: 
  Country: None (occurrence: None)
  Receive Date: 20110129
  Receipt Date: 20100310
  Transmission Date: 20110831
  Serious: No
  Sender: FDA-Public Use
  Company Number: US-ABBOTT-10P-163-0631634-00

PATIENT
  Sex: Male

DRUGS (1)
  1. HUMIRA [Suspect]
     Indication: ANKYLOSING SPONDYLITIS
     Dates: start: 20100303

REACTIONS (5)
  - FALL [None]
  - MUSCULAR WEAKNESS [None]
  - JOINT INSTABILITY [None]
  - MUSCLE SPASMS [None]
  - PAIN [None]
